FAERS Safety Report 5208925-4 (Version None)
Quarter: 2007Q1

REPORT INFORMATION
  Report Type: 
  Country: None (occurrence: None)
  Receive Date: 20070116
  Receipt Date: 20070108
  Transmission Date: 20070707
  Serious: Yes (Other)
  Sender: FDA-Public Use
  Company Number: PHEH2007US00678

PATIENT
  Age: 59 Year
  Sex: Male
  Weight: 81.65 kg

DRUGS (13)
  1. JANUVIA [Concomitant]
  2. STARLIX [Suspect]
     Indication: DIABETES MELLITUS
     Dosage: 125 MG, UNK
     Route: 048
     Dates: start: 20060401
  3. TRICOR [Concomitant]
  4. TRILEPTAL [Concomitant]
  5. DEPAKOTE [Suspect]
     Indication: CONVULSION
  6. ^HOMOCORE^ [Concomitant]
  7. ^LISCIOL^ [Concomitant]
  8. LANTUS [Suspect]
     Indication: DIABETES MELLITUS
     Dosage: 14 U, QD
     Dates: start: 20060401
  9. LANTUS [Suspect]
     Dosage: 10 U, QD
  10. LANTUS [Suspect]
     Dosage: 8 U, QD
  11. LANTUS [Suspect]
     Dosage: 6 U, QD
     Route: 048
  12. TOPAMAX [Suspect]
     Dosage: 400 MG, QD
     Dates: start: 20060901
  13. ZETIA [Concomitant]

REACTIONS (3)
  - CONVULSION [None]
  - HYPOGLYCAEMIA [None]
  - WEIGHT DECREASED [None]
